APPROVED DRUG PRODUCT: CONZIP
Active Ingredient: TRAMADOL HYDROCHLORIDE
Strength: 300MG
Dosage Form/Route: CAPSULE, EXTENDED RELEASE;ORAL
Application: N022370 | Product #003
Applicant: CIPHER PHARMACEUTICALS INC
Approved: May 7, 2010 | RLD: Yes | RS: No | Type: RX